FAERS Safety Report 4939423-0 (Version None)
Quarter: 2006Q1

REPORT INFORMATION
  Report Type: 
  Country: None (occurrence: None)
  Receive Date: 20060307
  Receipt Date: 20060228
  Transmission Date: 20060701
  Serious: Yes (Other)
  Sender: FDA-Public Use
  Company Number: 200610082BVD

PATIENT
  Sex: 0

DRUGS (1)
  1. AVELOX [Suspect]
     Indication: BRONCHITIS BACTERIAL

REACTIONS (2)
  - CEREBRAL INFARCTION [None]
  - HEMIANOPIA [None]
